FAERS Safety Report 9741795 (Version 11)
Quarter: 2014Q2

REPORT INFORMATION
  Report Type: Report from Study
  Country: JP (occurrence: JP)
  Receive Date: 20131210
  Receipt Date: 20140609
  Transmission Date: 20141212
  Serious: Yes (Hospitalization)
  Sender: FDA-Public Use
  Company Number: JP-ROCHE-1305552

PATIENT
  Age: 61 Year
  Sex: Female
  Weight: 40.5 kg

DRUGS (28)
  1. OBINUTUZUMAB [Suspect]
     Indication: NON-HODGKIN^S LYMPHOMA UNSPECIFIED HISTOLOGY INDOLENT
     Dosage: DOSE CONCENTRATION OF LAST DOSE TAKEN 4MG/ML, VOLUME OF LAST DOSES TAKEN 40 ML AND 250 ML?DATES OF M
     Route: 042
     Dates: start: 20131002
  2. CYCLOPHOSPHAMIDE [Suspect]
     Indication: NON-HODGKIN^S LYMPHOMA UNSPECIFIED HISTOLOGY INDOLENT
     Dosage: DOSE OF LAST DOSE TAKEN 1000 MG AND 630 MG?DATE OF MOST RECENT DOSE PRIOR TO AE ONSET : 5/NOV/2013,
     Route: 042
     Dates: start: 20131003
  3. DOXORUBICIN [Suspect]
     Indication: NON-HODGKIN^S LYMPHOMA UNSPECIFIED HISTOLOGY INDOLENT
     Dosage: DOSE OF LAST DOSE TAKEN IS 56 MG, 66 MG AND 44 MG?DATE OF MOST RECENT DOSE PRIOR TO AE ONSET IS 5/NO
     Route: 042
     Dates: start: 20131003
  4. VINCRISTINE [Suspect]
     Indication: NON-HODGKIN^S LYMPHOMA UNSPECIFIED HISTOLOGY INDOLENT
     Dosage: DOSE OF LAST DOSE TAKEN 1.9 MG AND 1.8 MG?DATE OF MOST RECENT DOSE PRIOR TO AE ONSET IS 5/NOV/2013,
     Route: 040
     Dates: start: 20131003
  5. PREDNISONE [Suspect]
     Indication: NON-HODGKIN^S LYMPHOMA UNSPECIFIED HISTOLOGY INDOLENT
     Dosage: DOSE OF LAST DOSE TAKEN 100 MG?DATE OF MOST RECENT DOSE PRIOR TO AE ONSET IS 5/NOV/2013 AND 02/DEC/2
     Route: 048
     Dates: start: 20131002
  6. LEVOFLOXACIN HYDRATE [Concomitant]
     Indication: PRODUCT USED FOR UNKNOWN INDICATION
     Route: 065
     Dates: start: 20131113, end: 20131114
  7. ACETAMINOPHEN [Concomitant]
     Route: 065
     Dates: start: 20131002
  8. ACETAMINOPHEN [Concomitant]
     Route: 065
     Dates: start: 20140117, end: 20140124
  9. DIPHENHYDRAMINE HCL [Concomitant]
     Route: 065
     Dates: start: 20131002
  10. ALLOPURINOL [Concomitant]
     Indication: TUMOUR LYSIS SYNDROME
     Route: 065
     Dates: start: 20131001, end: 20131017
  11. GRANISETRON HYDROCHLORIDE [Concomitant]
     Route: 065
     Dates: start: 20131003, end: 20140313
  12. MAGNESIUM OXIDE [Concomitant]
     Indication: CONSTIPATION
     Route: 065
     Dates: start: 20131009
  13. LANSOPRAZOLE [Concomitant]
     Indication: CONSTIPATION
     Route: 065
     Dates: start: 20131011, end: 20131017
  14. LANSOPRAZOLE [Concomitant]
     Indication: GASTRITIS PROPHYLAXIS
     Route: 065
     Dates: start: 20131113, end: 20140416
  15. LANSOPRAZOLE [Concomitant]
     Indication: DECREASED APPETITE
     Route: 065
     Dates: start: 20131018, end: 20131024
  16. LANSOPRAZOLE [Concomitant]
     Route: 065
     Dates: start: 20140115, end: 20140124
  17. REBAMIPIDE [Concomitant]
     Indication: CONSTIPATION
     Route: 065
     Dates: start: 20131011, end: 20131017
  18. REBAMIPIDE [Concomitant]
     Route: 065
     Dates: start: 20131018, end: 20131024
  19. CEFEPIME DIHYDROCHLORIDE [Concomitant]
     Route: 065
     Dates: start: 20131022, end: 20131023
  20. SENNOSIDE A+B [Concomitant]
     Indication: CONSTIPATION
     Route: 065
     Dates: start: 20131008, end: 20131016
  21. SENNOSIDE A+B [Concomitant]
     Route: 065
     Dates: start: 20131017, end: 20140115
  22. BROTIZOLAM [Concomitant]
     Indication: INSOMNIA
     Route: 065
     Dates: start: 20131025
  23. ATOVAQUONE [Concomitant]
     Indication: INFECTION PROPHYLAXIS
     Route: 065
     Dates: start: 20131106
  24. AZITHROMYCIN HYDRATE [Concomitant]
     Indication: LARYNGEAL PAIN
     Route: 065
     Dates: start: 20131231, end: 20131231
  25. AZITHROMYCIN HYDRATE [Concomitant]
     Route: 065
     Dates: start: 20140115, end: 20140115
  26. HEPARINOID [Concomitant]
     Route: 065
     Dates: start: 20131212
  27. OLOPATADINE HYDROCHLORIDE [Concomitant]
     Indication: URTICARIA
     Route: 065
     Dates: start: 20131024, end: 20131029
  28. OLOPATADINE HYDROCHLORIDE [Concomitant]
     Route: 065
     Dates: start: 20131030, end: 20131107

REACTIONS (1)
  - Febrile neutropenia [Recovered/Resolved]
